FAERS Safety Report 6181665-3 (Version None)
Quarter: 2009Q2

REPORT INFORMATION
  Report Type: 
  Country: None (occurrence: None)
  Receive Date: 20090506
  Receipt Date: 20090428
  Transmission Date: 20091009
  Serious: Yes (Other)
  Sender: FDA-Public Use
  Company Number: B0572781A

PATIENT
  Age: 15 Year
  Sex: Female

DRUGS (2)
  1. LAMICTAL [Suspect]
     Indication: TEMPORAL LOBE EPILEPSY
     Route: 065
     Dates: start: 20050101, end: 20090418
  2. TEGRETOL [Concomitant]

REACTIONS (6)
  - ABDOMINAL PAIN LOWER [None]
  - APPENDICITIS [None]
  - ARTHRITIS [None]
  - GAIT DISTURBANCE [None]
  - MUSCLE CONTRACTURE [None]
  - MUSCLE DISORDER [None]
